FAERS Safety Report 16279503 (Version 4)
Quarter: 2020Q3

REPORT INFORMATION
  Report Type: Report from Study
  Country: BR (occurrence: BR)
  Receive Date: 20190507
  Receipt Date: 20190905
  Transmission Date: 20201104
  Serious: Yes (Other)
  Sender: FDA-Public Use
  Company Number: BR-ROCHE-2311817

PATIENT
  Sex: Male

DRUGS (17)
  1. CISPLATIN. [Suspect]
     Active Substance: CISPLATIN
     Indication: DIFFUSE LARGE B-CELL LYMPHOMA
     Dosage: 2 CYCLES
     Route: 065
     Dates: start: 20181201
  2. RITUXIMAB. [Suspect]
     Active Substance: RITUXIMAB
     Indication: DIFFUSE LARGE B-CELL LYMPHOMA
     Dosage: 4 CYCLES
     Route: 065
     Dates: start: 201806, end: 201809
  3. BENDAMUSTINE [Suspect]
     Active Substance: BENDAMUSTINE
     Indication: DIFFUSE LARGE B-CELL LYMPHOMA
     Dosage: 2 CYCLES
     Route: 065
     Dates: start: 20181101
  4. PREDNISONE. [Suspect]
     Active Substance: PREDNISONE
     Indication: DIFFUSE LARGE B-CELL LYMPHOMA
     Dosage: 4 CYCLES
     Route: 065
     Dates: start: 201806, end: 201809
  5. CYCLOPHOSPHAMIDE. [Suspect]
     Active Substance: CYCLOPHOSPHAMIDE
     Indication: B-CELL LYMPHOMA
     Dosage: 4 CYCLES
     Route: 065
     Dates: start: 201806, end: 201809
  6. POLATUZUMAB VEDOTIN. [Suspect]
     Active Substance: POLATUZUMAB VEDOTIN
     Indication: DIFFUSE LARGE B-CELL LYMPHOMA
     Route: 065
     Dates: start: 20190725
  7. RITUXIMAB. [Suspect]
     Active Substance: RITUXIMAB
     Indication: B-CELL LYMPHOMA
     Dosage: 6 CYCLES
     Route: 065
     Dates: start: 201712, end: 201805
  8. RITUXIMAB. [Suspect]
     Active Substance: RITUXIMAB
     Dosage: 2 CYCLES
     Route: 065
     Dates: start: 20181201
  9. CYCLOPHOSPHAMIDE. [Suspect]
     Active Substance: CYCLOPHOSPHAMIDE
     Indication: DIFFUSE LARGE B-CELL LYMPHOMA
     Dosage: 6 CYCLES
     Route: 065
     Dates: start: 201712, end: 201805
  10. RITUXIMAB. [Suspect]
     Active Substance: RITUXIMAB
     Route: 065
     Dates: start: 20190725
  11. VINCRISTINE [Suspect]
     Active Substance: VINCRISTINE
     Indication: DIFFUSE LARGE B-CELL LYMPHOMA
     Dosage: 4 CYCLES
     Route: 065
     Dates: start: 201806, end: 201809
  12. DOXORUBICIN [Suspect]
     Active Substance: DOXORUBICIN
     Indication: DIFFUSE LARGE B-CELL LYMPHOMA
     Dosage: 4 CYCLES
     Route: 065
     Dates: start: 201806, end: 201809
  13. DEXAMETHASONE. [Suspect]
     Active Substance: DEXAMETHASONE
     Indication: DIFFUSE LARGE B-CELL LYMPHOMA
     Dosage: 2 CYCLES
     Route: 065
     Dates: start: 20181201
  14. CYTARABINE. [Suspect]
     Active Substance: CYTARABINE
     Indication: DIFFUSE LARGE B-CELL LYMPHOMA
     Dosage: 2 CYCLES
     Route: 065
     Dates: start: 20181201
  15. VINCRISTINE [Suspect]
     Active Substance: VINCRISTINE
     Indication: B-CELL LYMPHOMA
     Dosage: 6 CYCLES
     Route: 065
     Dates: start: 201712, end: 201805
  16. PREDNISONE. [Suspect]
     Active Substance: PREDNISONE
     Indication: B-CELL LYMPHOMA
     Dosage: 6 CYCLES
     Route: 065
     Dates: start: 201712, end: 201805
  17. OBINUTUZUMAB. [Suspect]
     Active Substance: OBINUTUZUMAB
     Indication: DIFFUSE LARGE B-CELL LYMPHOMA
     Dosage: 2 CYCLES
     Route: 042
     Dates: start: 20181101

REACTIONS (4)
  - Pyrexia [Recovered/Resolved]
  - General physical health deterioration [Unknown]
  - Blood product transfusion dependent [Unknown]
  - Infection [Unknown]
